FAERS Safety Report 4779823-5 (Version None)
Quarter: 2005Q3

REPORT INFORMATION
  Report Type: 
  Country: None (occurrence: None)
  Receive Date: 20050927
  Receipt Date: 20050906
  Transmission Date: 20060218
  Serious: Yes (Hospitalization, Other)
  Sender: FDA-Public Use
  Company Number: BE-JNJFOC-20050903678

PATIENT
  Sex: Male

DRUGS (5)
  1. CONCERTA [Suspect]
     Route: 048
     Dates: start: 20050904, end: 20050906
  2. SEROXAT [Concomitant]
     Route: 048
  3. STILNOCT [Concomitant]
     Route: 048
  4. XANAX [Concomitant]
     Route: 048
  5. TENORMIN [Concomitant]
     Route: 048

REACTIONS (3)
  - AGGRESSION [None]
  - ANXIETY [None]
  - RESTLESSNESS [None]
